FAERS Safety Report 5072303-1 (Version None)
Quarter: 2006Q3

REPORT INFORMATION
  Report Type: 
  Country: None (occurrence: None)
  Receive Date: 20060807
  Receipt Date: 20060621
  Transmission Date: 20061208
  Serious: Yes (Other)
  Sender: FDA-Public Use
  Company Number: US-AMGEN-US183785

PATIENT
  Age: 42 Year
  Sex: Female

DRUGS (3)
  1. ARANESP [Suspect]
     Indication: ANAEMIA
     Route: 058
     Dates: start: 20050509, end: 20060608
  2. HYDROXYUREA [Concomitant]
     Dates: start: 19960101
  3. FOLIC ACID [Concomitant]

REACTIONS (5)
  - ARTHRALGIA [None]
  - BACK PAIN [None]
  - EXTRAMEDULLARY HAEMOPOIESIS [None]
  - MASS [None]
  - PAIN IN EXTREMITY [None]
